FAERS Safety Report 13895866 (Version 1)
Quarter: 2017Q3

REPORT INFORMATION
  Report Type: Spontaneous
  Country: US (occurrence: None)
  Receive Date: 20170817
  Receipt Date: 20170817
  Transmission Date: 20171127
  Serious: Yes (Hospitalization)
  Sender: FDA-Public Use
  Company Number: None

PATIENT
  Age: 55 Year
  Sex: Female

DRUGS (9)
  1. DULOXETINE. [Concomitant]
     Active Substance: DULOXETINE
  2. HYDROXYCHLOROQUINE [Concomitant]
     Active Substance: HYDROXYCHLOROQUINE
  3. SPIRONOLACTONE. [Suspect]
     Active Substance: SPIRONOLACTONE
     Indication: CARDIAC FAILURE CONGESTIVE
     Route: 048
     Dates: start: 20170323, end: 20170612
  4. PREGABALIN. [Concomitant]
     Active Substance: PREGABALIN
  5. DESLORATIDINE [Concomitant]
     Active Substance: DESLORATADINE
  6. TADALAFIL [Concomitant]
     Active Substance: TADALAFIL
  7. ETANERCEPT [Concomitant]
     Active Substance: ETANERCEPT
  8. FLUTICASONE. [Concomitant]
     Active Substance: FLUTICASONE
  9. TREPROSTINIL [Concomitant]
     Active Substance: TREPROSTINIL

REACTIONS (2)
  - Fluid retention [None]
  - Rash morbilliform [None]

NARRATIVE: CASE EVENT DATE: 20170612
